FAERS Safety Report 6524294-1 (Version None)
Quarter: 2009Q4

REPORT INFORMATION
  Report Type: 
  Country: None (occurrence: None)
  Receive Date: 20091231
  Receipt Date: 20091224
  Transmission Date: 20100525
  Serious: Yes (Hospitalization)
  Sender: FDA-Public Use
  Company Number: JP-MERCK-0912USA00558

PATIENT
  Age: 94 Year
  Sex: Male
  Weight: 41 kg

DRUGS (15)
  1. STROMECTOL [Suspect]
     Indication: ACARODERMATITIS
     Route: 048
     Dates: start: 20090828, end: 20090828
  2. STROMECTOL [Suspect]
     Route: 048
     Dates: start: 20090821, end: 20090821
  3. ONEALFA [Concomitant]
     Indication: HYPERPARATHYROIDISM SECONDARY
     Route: 048
     Dates: start: 20090725, end: 20090908
  4. MYSLEE [Concomitant]
     Indication: INSOMNIA
     Route: 048
  5. WYPAX [Concomitant]
     Indication: INSOMNIA
     Route: 048
     Dates: end: 20090829
  6. JUVELA [Concomitant]
     Indication: ARTERIOSCLEROSIS OBLITERANS
     Route: 048
     Dates: start: 20090515
  7. TAKEPRON [Concomitant]
     Indication: REFLUX OESOPHAGITIS
     Route: 048
  8. MUCOSTA [Concomitant]
     Indication: GASTRITIS
     Route: 048
     Dates: end: 20090829
  9. EURAX [Concomitant]
     Route: 061
  10. NALFURAFINE HYDROCHLORIDE [Concomitant]
     Indication: PRURITUS
     Route: 048
     Dates: start: 20090807, end: 20090908
  11. ARTIST [Concomitant]
     Indication: HYPERTENSION
     Route: 048
     Dates: start: 20090409, end: 20090828
  12. ARTIST [Concomitant]
     Route: 065
     Dates: start: 20090829
  13. MICARDIS [Concomitant]
     Indication: HYPERTENSION
     Route: 048
     Dates: end: 20090828
  14. ALLELOCK [Concomitant]
     Indication: PRURITUS
     Route: 065
     Dates: start: 20090715, end: 20090827
  15. TAMIFLU [Concomitant]
     Route: 048
     Dates: start: 20090825, end: 20090825

REACTIONS (2)
  - ALTERED STATE OF CONSCIOUSNESS [None]
  - HYPERCALCAEMIA [None]
